FAERS Safety Report 8164607-0 (Version None)
Quarter: 2012Q1

REPORT INFORMATION
  Report Type: 
  Country: None (occurrence: None)
  Receive Date: 20120227
  Receipt Date: 20120222
  Transmission Date: 20120608
  Serious: Yes (Death, Hospitalization, Other)
  Sender: FDA-Public Use
  Company Number: US-BRISTOL-MYERS SQUIBB COMPANY-16413031

PATIENT
  Age: 93 Year
  Sex: Male

DRUGS (1)
  1. COUMADIN [Suspect]
     Indication: COAGULOPATHY

REACTIONS (6)
  - PNEUMONIA [None]
  - MUSCULOSKELETAL STIFFNESS [None]
  - MYOCARDIAL INFARCTION [None]
  - SPEECH DISORDER [None]
  - DYSPNOEA [None]
  - HEARING IMPAIRED [None]
